FAERS Safety Report 11894606 (Version 4)
Quarter: 2016Q2

REPORT INFORMATION
  Report Type: Spontaneous
  Country: IT (occurrence: IT)
  Receive Date: 20160107
  Receipt Date: 20160411
  Transmission Date: 20160815
  Serious: Yes (Congenital Anomaly, Other)
  Sender: FDA-Public Use
  Company Number: IT-ACTAVIS-2015-28798

PATIENT
  Weight: 2.02 kg

DRUGS (3)
  1. EPIRUBICIN (UNKNOWN) [Interacting]
     Active Substance: EPIRUBICIN
     Indication: INVASIVE DUCTAL BREAST CARCINOMA
     Dosage: 90 MG/M2, CYCLICAL, 2 CYCLES
     Route: 064
  2. DEXAMETHASONE (UNKNOWN) [Suspect]
     Active Substance: DEXAMETHASONE
     Indication: PRODUCT USED FOR UNKNOWN INDICATION
     Dosage: 12 MG, DAILY
     Route: 064
  3. CYCLOPHOSPHAMIDE. [Concomitant]
     Active Substance: CYCLOPHOSPHAMIDE
     Indication: INVASIVE DUCTAL BREAST CARCINOMA
     Dosage: 600 MG/M2, CYCLICAL; 2 CYCLES
     Route: 064

REACTIONS (4)
  - Ventricular hypokinesia [Unknown]
  - Foetal exposure during pregnancy [Unknown]
  - Drug interaction [Unknown]
  - Cardiotoxicity [Unknown]

NARRATIVE: CASE EVENT DATE: 20120404
